FAERS Safety Report 26077842 (Version 1)
Quarter: 2025Q4

REPORT INFORMATION
  Report Type: Spontaneous
  Country: US (occurrence: US)
  Receive Date: 20251122
  Receipt Date: 20251122
  Transmission Date: 20260118
  Serious: No
  Sender: MDD OPERATIONS
  Company Number: US-MDD US Operations-MDD202510-004014

PATIENT
  Age: 53 Year
  Sex: Male

DRUGS (4)
  1. ONAPGO [Suspect]
     Active Substance: APOMORPHINE HYDROCHLORIDE
     Indication: Parkinson^s disease
     Dosage: 12 TO 14 HOURS A DAY
     Dates: start: 20250915
  2. GOCOVRI [Concomitant]
     Active Substance: AMANTADINE
     Indication: On and off phenomenon
     Dosage: NOT PROVIDED
  3. SINEMET [Concomitant]
     Active Substance: CARBIDOPA\LEVODOPA
     Dosage: 50/200, TWO TABLETS AT NIGHT
  4. SINEMET [Concomitant]
     Active Substance: CARBIDOPA\LEVODOPA
     Dosage: 25/100 ONE TABLET EVERY TWO HOURS UPTO 10 IN A DAY

REACTIONS (1)
  - Somnolence [Recovering/Resolving]
